FAERS Safety Report 14485097 (Version 1)
Quarter: 2018Q1

REPORT INFORMATION
  Report Type: Spontaneous
  Country: KR (occurrence: KR)
  Receive Date: 20180205
  Receipt Date: 20180205
  Transmission Date: 20180509
  Serious: Yes (Hospitalization)
  Sender: FDA-Public Use
  Company Number: KR-DEPOMED, INC.-KR-2018DEP000147

PATIENT
  Age: 63 Year
  Sex: Male
  Weight: 75 kg

DRUGS (1)
  1. DICLOFENAC [Suspect]
     Active Substance: DICLOFENAC
     Indication: NASOPHARYNGITIS
     Dosage: 90 MG, UNK
     Route: 013

REACTIONS (1)
  - Necrosis [Unknown]
